FAERS Safety Report 22149371 (Version 2)
Quarter: 2023Q1

REPORT INFORMATION
  Report Type: Report from Study
  Country: US (occurrence: US)
  Receive Date: 20230329
  Receipt Date: 20230330
  Transmission Date: 20230417
  Serious: No
  Sender: FDA-Public Use
  Company Number: US-002147023-NVSC2023US071882

PATIENT
  Sex: Female

DRUGS (2)
  1. METHOTREXATE [Suspect]
     Active Substance: METHOTREXATE
     Indication: Psoriasis
     Dosage: 10 MG
     Route: 048
  2. METHOTREXATE [Suspect]
     Active Substance: METHOTREXATE
     Indication: Idiopathic urticaria

REACTIONS (1)
  - Drug ineffective [Unknown]
